FAERS Safety Report 9393604 (Version 2)
Quarter: 2013Q4

REPORT INFORMATION
  Report Type: Spontaneous
  Country: US (occurrence: US)
  Receive Date: 20130710
  Receipt Date: 20131031
  Transmission Date: 20140711
  Serious: No
  Sender: FDA-Public Use
  Company Number: US-009507513-1307USA005007

PATIENT
  Age: 97 Year
  Sex: Male
  Weight: 72.56 kg

DRUGS (2)
  1. MIRALAX [Suspect]
     Indication: INTESTINAL OBSTRUCTION
     Dosage: UNK, QD
     Route: 048
     Dates: start: 20130301, end: 20130330
  2. MIRALAX [Suspect]
     Indication: MEDICAL OBSERVATION
     Dosage: UNK, QOD
     Route: 048

REACTIONS (4)
  - Gastrointestinal pain [Unknown]
  - Incorrect drug administration duration [Unknown]
  - Inappropriate schedule of drug administration [Unknown]
  - Off label use [Unknown]
